FAERS Safety Report 14970335 (Version 6)
Quarter: 2018Q4

REPORT INFORMATION
  Report Type: Spontaneous
  Country: US (occurrence: US)
  Receive Date: 20180604
  Receipt Date: 20181207
  Transmission Date: 20190204
  Serious: Yes (Hospitalization, Other)
  Sender: FDA-Public Use
  Company Number: US-BRISTOL-MYERS SQUIBB COMPANY-BMS-2018-048148

PATIENT
  Sex: Female
  Weight: 118 kg

DRUGS (1)
  1. ORENCIA [Suspect]
     Active Substance: ABATACEPT
     Indication: PSORIATIC ARTHROPATHY
     Dosage: 125 MG, QWK
     Route: 058
     Dates: start: 201804

REACTIONS (9)
  - Cellulitis [Unknown]
  - Renal failure [Unknown]
  - Arthropathy [Unknown]
  - Arthralgia [Unknown]
  - Peripheral swelling [Unknown]
  - Urinary tract infection [Unknown]
  - Pseudomonas infection [Unknown]
  - Renal impairment [Unknown]
  - Malaise [Unknown]
